FAERS Safety Report 5247242-3 (Version None)
Quarter: 2007Q1

REPORT INFORMATION
  Report Type: 
  Country: None (occurrence: None)
  Receive Date: 20070227
  Receipt Date: 20070220
  Transmission Date: 20070707
  Serious: Yes (Death)
  Sender: FDA-Public Use
  Company Number: PHBS2007CH03143

PATIENT
  Sex: Male

DRUGS (6)
  1. TRINITRINE [Concomitant]
  2. ASPIRIN [Concomitant]
  3. PLAVIX [Concomitant]
  4. BELOC ZOK [Concomitant]
  5. GEVILON [Concomitant]
  6. NITRODERM [Suspect]
     Indication: CORONARY ARTERY DISEASE
     Dosage: 1 PATSCH/DAY
     Route: 062
     Dates: start: 20070131, end: 20070218

REACTIONS (2)
  - DEATH [None]
  - DRUG INEFFECTIVE [None]
